FAERS Safety Report 7340876-1 (Version None)
Quarter: 2011Q1

REPORT INFORMATION
  Report Type: 
  Country: None (occurrence: None)
  Receive Date: 20110228
  Receipt Date: 20110209
  Transmission Date: 20110831
  Serious: Yes (Hospitalization)
  Sender: FDA-Public Use
  Company Number: AMAG201100028

PATIENT
  Age: 82 Year
  Sex: Male
  Weight: 65 kg

DRUGS (1)
  1. FERAHEME [Suspect]
     Indication: IRON DEFICIENCY ANAEMIA
     Dosage: 510 MG, SINGLE, INTRAVENOUS
     Route: 042
     Dates: start: 20101227, end: 20101227

REACTIONS (7)
  - PULMONARY CONGESTION [None]
  - HYPOTENSION [None]
  - HYPERSENSITIVITY [None]
  - LETHARGY [None]
  - DIZZINESS [None]
  - DYSPNOEA [None]
  - DIARRHOEA [None]
